FAERS Safety Report 24822262 (Version 1)
Quarter: 2025Q1

REPORT INFORMATION
  Report Type: Spontaneous
  Country: JP (occurrence: JP)
  Receive Date: 20250108
  Receipt Date: 20250108
  Transmission Date: 20250409
  Serious: Yes (Hospitalization)
  Sender: SANOFI AVENTIS
  Company Number: JP-SA-2025SA004532

PATIENT
  Sex: Female

DRUGS (2)
  1. KEVZARA [Suspect]
     Active Substance: SARILUMAB
     Indication: Product used for unknown indication
     Dosage: UNK UNK, QOW
     Route: 058
     Dates: start: 2021, end: 202412
  2. KEVZARA [Suspect]
     Active Substance: SARILUMAB
     Route: 058

REACTIONS (7)
  - Nausea [Unknown]
  - Headache [Unknown]
  - Thirst [Unknown]
  - Blood creatine phosphokinase increased [Unknown]
  - Nasopharyngitis [Recovering/Resolving]
  - Rhinorrhoea [Recovering/Resolving]
  - Oropharyngeal discomfort [Recovering/Resolving]

NARRATIVE: CASE EVENT DATE: 20241201
